FAERS Safety Report 6724892-6 (Version None)
Quarter: 2010Q2

REPORT INFORMATION
  Report Type: 
  Country: None (occurrence: None)
  Receive Date: 20100514
  Receipt Date: 20100510
  Transmission Date: 20101027
  Serious: Yes (Death)
  Sender: FDA-Public Use
  Company Number: US-BIOGENIDEC-2010BI009745

PATIENT
  Age: 43 Year
  Sex: Female

DRUGS (6)
  1. TYSABRI [Suspect]
     Indication: MULTIPLE SCLEROSIS
     Route: 042
     Dates: start: 20090729, end: 20091222
  2. PAIN MEDICATION (NOS) [Concomitant]
  3. VALIUM [Concomitant]
  4. NEURONTIN [Concomitant]
  5. SEROQUEL [Concomitant]
  6. MOBIC [Concomitant]

REACTIONS (1)
  - DEATH [None]
